FAERS Safety Report 5494906-2 (Version None)
Quarter: 2007Q4

REPORT INFORMATION
  Report Type: 
  Country: None (occurrence: None)
  Receive Date: 20071024
  Receipt Date: 20071016
  Transmission Date: 20080405
  Serious: Yes (Other)
  Sender: FDA-Public Use
  Company Number: US-ASTRAZENECA-2007UW18496

PATIENT
  Age: 41 Year
  Sex: Male
  Weight: 150 kg

DRUGS (5)
  1. SEROQUEL [Suspect]
     Indication: SLEEP DISORDER
     Route: 048
     Dates: start: 20020719, end: 20050401
  2. SEROQUEL [Suspect]
     Route: 048
     Dates: start: 20020719, end: 20050401
  3. SEROQUEL [Suspect]
     Route: 048
     Dates: start: 20020719, end: 20050401
  4. SEROQUEL [Suspect]
     Route: 048
     Dates: start: 20020719, end: 20050401
  5. ZYPREXA [Concomitant]

REACTIONS (13)
  - ANGER [None]
  - ASTHMA [None]
  - ATTENTION DEFICIT/HYPERACTIVITY DISORDER [None]
  - BACK DISORDER [None]
  - DIABETIC NEUROPATHY [None]
  - HEART RATE IRREGULAR [None]
  - KNEE ARTHROPLASTY [None]
  - MOOD SWINGS [None]
  - MUSCULOSKELETAL DISORDER [None]
  - NASAL DISORDER [None]
  - RESTLESS LEGS SYNDROME [None]
  - SLEEP APNOEA SYNDROME [None]
  - TYPE 2 DIABETES MELLITUS [None]
